FAERS Safety Report 10516418 (Version 4)
Quarter: 2015Q3

REPORT INFORMATION
  Report Type: Spontaneous
  Country: US (occurrence: US)
  Receive Date: 20141014
  Receipt Date: 20150804
  Transmission Date: 20151125
  Serious: Yes (Hospitalization)
  Sender: FDA-Public Use
  Company Number: US-BAYER-2014-150582

PATIENT
  Age: 35 Year
  Sex: Female
  Weight: 86 kg

DRUGS (4)
  1. CALNATE [Concomitant]
     Dosage: UNK UNK, QD
     Dates: start: 20090223
  2. OMEPRAZOLE. [Concomitant]
     Active Substance: OMEPRAZOLE
     Dosage: 20 MG, QD
     Dates: start: 20090223
  3. ALBUTEROL. [Concomitant]
     Active Substance: ALBUTEROL
     Dosage: UNK90 MCG/ACT, 1-2 PUFFS EVERY 4 HOURS PRN
     Dates: start: 20090223
  4. MIRENA [Suspect]
     Active Substance: LEVONORGESTREL
     Indication: CONTRACEPTION
     Dosage: 20 MCG/24HR, CONT
     Route: 015
     Dates: start: 20070228, end: 20090422

REACTIONS (11)
  - Abdominal pain [None]
  - Device expulsion [None]
  - Fear of disease [None]
  - Injury [None]
  - Sleep disorder [None]
  - Emotional distress [None]
  - Uterine perforation [None]
  - Anxiety [None]
  - Device issue [None]
  - Scar [None]
  - Depression [None]

NARRATIVE: CASE EVENT DATE: 200706
